FAERS Safety Report 25044758 (Version 1)
Quarter: 2025Q1

REPORT INFORMATION
  Report Type: Spontaneous
  Country: IT (occurrence: IT)
  Receive Date: 20250306
  Receipt Date: 20250306
  Transmission Date: 20250409
  Serious: Yes (Other)
  Sender: ALEXION PHARMACEUTICALS
  Company Number: None

PATIENT
  Age: 21 Year
  Weight: 50 kg

DRUGS (3)
  1. SOLIRIS [Suspect]
     Active Substance: ECULIZUMAB
     Indication: Atypical haemolytic uraemic syndrome
  2. DEFITELIO [Concomitant]
     Active Substance: DEFIBROTIDE SODIUM
     Route: 065
  3. IG VENA [Concomitant]
     Active Substance: HUMAN IMMUNOGLOBULIN G

REACTIONS (3)
  - Device related sepsis [Recovered/Resolved]
  - Bacterial sepsis [Recovered/Resolved]
  - Cytomegalovirus infection [Recovered/Resolved]
